FAERS Safety Report 22611166 (Version 1)
Quarter: 2023Q2

REPORT INFORMATION
  Report Type: Spontaneous
  Country: US (occurrence: None)
  Receive Date: 20230616
  Receipt Date: 20230616
  Transmission Date: 20230722
  Serious: Yes (Other)
  Sender: FDA-Public Use
  Company Number: 2023A139375

PATIENT
  Age: 58 Year
  Sex: Male

DRUGS (2)
  1. OSIMERTINIB [Suspect]
     Active Substance: OSIMERTINIB
     Route: 048
  2. MIFEPRISTONE [Concomitant]
     Active Substance: MIFEPRISTONE
     Indication: Small cell lung cancer
     Route: 048

REACTIONS (1)
  - Malignant transformation [Unknown]
